FAERS Safety Report 22663435 (Version 3)
Quarter: 2023Q4

REPORT INFORMATION
  Report Type: Other
  Country: CN (occurrence: None)
  Receive Date: 20230703
  Receipt Date: 20231002
  Transmission Date: 20240110
  Serious: Yes (Other)
  Sender: FDA-Public Use
  Company Number: CN-ROCHE-3292754

PATIENT
  Age: 35 Year
  Sex: Female
  Weight: 66 kg

DRUGS (4)
  1. PERJETA [Suspect]
     Active Substance: PERTUZUMAB
     Indication: HER2 positive breast cancer
     Dosage: FORM OF ADMIN. TEXT: INJECTION, 420 MG (14ML) PER VIAL
     Route: 042
     Dates: start: 20230131
  2. PACLITAXEL [Suspect]
     Active Substance: PACLITAXEL
     Indication: HER2 positive breast cancer
     Route: 041
     Dates: start: 20230131
  3. TRASTUZUMAB [Suspect]
     Active Substance: TRASTUZUMAB
     Indication: HER2 positive breast cancer
     Dosage: 150MG PER VIAL OR 60MG PER VIAL
     Route: 042
     Dates: start: 20230131
  4. DOCETAXEL [Concomitant]
     Active Substance: DOCETAXEL
     Indication: HER2 positive breast cancer

REACTIONS (8)
  - Surgery [Unknown]
  - Bone pain [Recovered/Resolved]
  - Pruritus [Recovered/Resolved]
  - Transaminases increased [Recovered/Resolved]
  - Mental disorder [Recovered/Resolved]
  - Skin wound [Recovered/Resolved]
  - Paraesthesia [Not Recovered/Not Resolved]
  - Physical deconditioning [Unknown]

NARRATIVE: CASE EVENT DATE: 20230201
